FAERS Safety Report 8921330 (Version 1)
Quarter: 2012Q4

REPORT INFORMATION
  Report Type: 
  Country: US (occurrence: US)
  Receive Date: 20121121
  Receipt Date: 20121121
  Transmission Date: 20130627
  Serious: No
  Sender: FDA-Public Use
  Company Number: US-TEVA-371400USA

PATIENT
  Sex: Female

DRUGS (1)
  1. QNASL [Suspect]

REACTIONS (2)
  - Nasal discomfort [Unknown]
  - Epistaxis [Unknown]
